FAERS Safety Report 16588675 (Version 1)
Quarter: 2019Q3

REPORT INFORMATION
  Report Type: Other
  Country: DE (occurrence: DE)
  Receive Date: 20190718
  Receipt Date: 20190718
  Transmission Date: 20191004
  Serious: Yes (Hospitalization)
  Sender: FDA-Public Use
  Company Number: DE-CELLTRION INC.-2019DE022690

PATIENT

DRUGS (19)
  1. XIMOVAN [Concomitant]
     Active Substance: ZOPICLONE
     Dosage: 7.5 MG, 0-0-0-1
     Route: 048
  2. DIMETINDEN [Concomitant]
     Active Substance: DIMETHINDENE
     Dosage: 4 MG
     Route: 042
  3. PREDNISON [Concomitant]
     Active Substance: PREDNISONE
     Dosage: 100 MG
     Route: 048
  4. COTRIM FORTE [Concomitant]
     Active Substance: SULFAMETHOXAZOLE\TRIMETHOPRIM
     Dosage: 960 MG, 1-0-1
     Route: 048
  5. TILIDINE/NALOXONE [Concomitant]
     Active Substance: NALOXONE HYDROCHLORIDE\TILIDINE HYDROCHLORIDE
     Dosage: 50|4 MG, B. B
     Route: 048
  6. NEULASTA [Concomitant]
     Active Substance: PEGFILGRASTIM
     Dosage: UNK
     Route: 058
  7. DOXORUBICIN [Suspect]
     Active Substance: DOXORUBICIN
     Dosage: 375 MG/M2
     Route: 042
  8. LOVASTATIN. [Concomitant]
     Active Substance: LOVASTATIN
     Dosage: 20 MG, 0-0-1/2
     Route: 048
  9. ENZYM-LEFAX [Concomitant]
     Dosage: 100 MG, 0-0-1
     Route: 048
  10. CYCLOPHOSPHAMID [Suspect]
     Active Substance: CYCLOPHOSPHAMIDE
     Dosage: 750 MG/M2
     Route: 042
  11. ALLOPURINOL. [Concomitant]
     Active Substance: ALLOPURINOL
     Dosage: 100 MG, 1-0-0
     Route: 048
  12. RITUXIMAB (UNKNOWN) [Suspect]
     Active Substance: RITUXIMAB
     Dosage: 375 MG/M2
     Route: 042
  13. LONQUEX [Concomitant]
     Active Substance: LIPEGFILGRASTIM
     Dosage: AM 10.03.17
     Route: 058
  14. VINCRISTIN [Suspect]
     Active Substance: VINCRISTINE
     Dosage: 2 MG
     Route: 042
  15. ACICLOVIR [Concomitant]
     Active Substance: ACYCLOVIR
     Dosage: 400 MG, 1-1-1-1-1
     Route: 048
  16. MCP [Concomitant]
     Active Substance: METOCLOPRAMIDE HYDROCHLORIDE
     Dosage: 10 MG
     Route: 048
  17. PANTOPRAZOL [Concomitant]
     Active Substance: PANTOPRAZOLE SODIUM
     Dosage: 20 MG, 1-0-0
     Route: 048
  18. FUROSEMID [Concomitant]
     Active Substance: FUROSEMIDE
     Dosage: 40 MG, 1-0-0
     Route: 048
  19. PARACETAMOL [Concomitant]
     Active Substance: ACETAMINOPHEN
     Dosage: 1000 MG
     Route: 048

REACTIONS (5)
  - Nausea [Unknown]
  - Dizziness [Unknown]
  - Dry mouth [Unknown]
  - Cough [Unknown]
  - Vomiting [Unknown]
